FAERS Safety Report 9720089 (Version 1)
Quarter: 2013Q4

REPORT INFORMATION
  Report Type: Spontaneous
  Country: US (occurrence: US)
  Receive Date: 20131128
  Receipt Date: 20131128
  Transmission Date: 20140711
  Serious: No
  Sender: FDA-Public Use
  Company Number: US-009507513-1311USA007166

PATIENT
  Age: 30 Year
  Sex: Female

DRUGS (2)
  1. ELOCON [Suspect]
     Indication: ECZEMA
     Route: 061
  2. CORTIZONE 10 [Concomitant]

REACTIONS (1)
  - Dry skin [Unknown]
